FAERS Safety Report 6928484-5 (Version None)
Quarter: 2010Q3

REPORT INFORMATION
  Report Type: 
  Country: None (occurrence: None)
  Receive Date: 20100806
  Receipt Date: 20090630
  Transmission Date: 20110219
  Serious: No
  Sender: FDA-Public Use
  Company Number: 2009-00283

PATIENT
  Age: 55 Year
  Sex: Male
  Weight: 80.2867 kg

DRUGS (3)
  1. ZICAM COLD REMEDY GEL SWABS [Suspect]
     Dosage: 2XW X 5 MONTHS
     Dates: start: 20081201, end: 20090501
  2. PHENOBARBITAL [Concomitant]
  3. LOPID [Concomitant]

REACTIONS (2)
  - ANOSMIA [None]
  - EPISTAXIS [None]
